FAERS Safety Report 12970386 (Version 1)
Quarter: 2016Q4

REPORT INFORMATION
  Report Type: Spontaneous
  Country: SE (occurrence: SE)
  Receive Date: 20161123
  Receipt Date: 20161123
  Transmission Date: 20170207
  Serious: Yes (Death, Life-Threatening, Other)
  Sender: FDA-Public Use
  Company Number: SE-BRISTOL-MYERS SQUIBB COMPANY-BMS-2016-097432

PATIENT
  Age: 61 Year
  Sex: Female

DRUGS (1)
  1. ELIQUIS [Suspect]
     Active Substance: APIXABAN
     Indication: CEREBROVASCULAR ACCIDENT PROPHYLAXIS
     Dosage: 5 MG, BID
     Route: 048
     Dates: start: 20161002, end: 20161004

REACTIONS (10)
  - Ventricular fibrillation [Unknown]
  - Postoperative renal failure [Unknown]
  - Cerebral infarction [Fatal]
  - Coronary artery occlusion [Unknown]
  - Coronary artery bypass [Unknown]
  - Cardiogenic shock [Unknown]
  - Procedural haemorrhage [Recovering/Resolving]
  - Cardioversion [Unknown]
  - Cardiac failure [Unknown]
  - Packed red blood cell transfusion [Unknown]

NARRATIVE: CASE EVENT DATE: 20161004
